FAERS Safety Report 10578815 (Version 2)
Quarter: 2014Q4

REPORT INFORMATION
  Report Type: Spontaneous
  Country: JP (occurrence: JP)
  Receive Date: 20141112
  Receipt Date: 20141112
  Transmission Date: 20150529
  Serious: Yes (Other)
  Sender: FDA-Public Use
  Company Number: PHHY2014JP101009

PATIENT
  Age: 55 Year
  Sex: Male

DRUGS (2)
  1. GLIVEC [Suspect]
     Active Substance: IMATINIB MESYLATE
     Indication: GASTROINTESTINAL STROMAL TUMOUR
     Dosage: 400 MG, DAILY
     Route: 048
     Dates: start: 200501
  2. GLIVEC [Suspect]
     Active Substance: IMATINIB MESYLATE
     Dosage: 400 MG, DAILY
     Route: 048
     Dates: start: 20060301

REACTIONS (10)
  - Malignant neoplasm progression [Unknown]
  - Malaise [Unknown]
  - Fatigue [Unknown]
  - Metastases to bone [Unknown]
  - Gastrointestinal stromal tumour [Unknown]
  - Decreased appetite [Unknown]
  - Treatment failure [Unknown]
  - Neoplasm [Unknown]
  - Metastases to liver [Unknown]
  - Diarrhoea [Unknown]

NARRATIVE: CASE EVENT DATE: 200601
